FAERS Safety Report 13500590 (Version 2)
Quarter: 2017Q2

REPORT INFORMATION
  Report Type: Spontaneous
  Country: CY (occurrence: CY)
  Receive Date: 20170501
  Receipt Date: 20170510
  Transmission Date: 20170830
  Serious: Yes (Hospitalization, Other)
  Sender: FDA-Public Use
  Company Number: CY-PFIZER INC-2017143703

PATIENT
  Age: 70 Year
  Sex: Male

DRUGS (2)
  1. VIAGRA [Suspect]
     Active Substance: SILDENAFIL CITRATE
     Dosage: 50MG X3 (150 MG), UNK
     Route: 048
     Dates: start: 201704
  2. VIAGRA [Suspect]
     Active Substance: SILDENAFIL CITRATE
     Indication: ERECTILE DYSFUNCTION
     Dosage: 50 MG, AS NEEDED
     Route: 048
     Dates: start: 201704, end: 201704

REACTIONS (6)
  - Ventricular fibrillation [Recovering/Resolving]
  - Contraindicated product administered [Unknown]
  - Intentional product misuse [Unknown]
  - Acute coronary syndrome [Recovering/Resolving]
  - Enzyme level increased [Recovered/Resolved]
  - Myocardial infarction [Recovering/Resolving]

NARRATIVE: CASE EVENT DATE: 201704
